FAERS Safety Report 5730746-4 (Version None)
Quarter: 2008Q2

REPORT INFORMATION
  Report Type: 
  Country: None (occurrence: None)
  Receive Date: 20080507
  Receipt Date: 20080429
  Transmission Date: 20081010
  Serious: Yes (Hospitalization)
  Sender: FDA-Public Use
  Company Number: FR-JNJFOC-20080103061

PATIENT
  Age: 66 Year
  Sex: Male

DRUGS (7)
  1. HALDOL [Suspect]
     Indication: DRUG USE FOR UNKNOWN INDICATION
  2. LAROXYL [Suspect]
     Indication: DRUG USE FOR UNKNOWN INDICATION
  3. NOZINAN [Suspect]
     Indication: DRUG USE FOR UNKNOWN INDICATION
  4. ARTANE [Suspect]
     Indication: DRUG USE FOR UNKNOWN INDICATION
     Route: 048
  5. MEPRONIZINE [Suspect]
     Indication: DRUG USE FOR UNKNOWN INDICATION
     Route: 048
  6. NOCTAMIDE [Concomitant]
  7. TRANXENE [Concomitant]
     Indication: DEPRESSION

REACTIONS (1)
  - NECROTISING COLITIS [None]
